FAERS Safety Report 4892705-3 (Version None)
Quarter: 2006Q1

REPORT INFORMATION
  Report Type: 
  Country: None (occurrence: None)
  Receive Date: 20060125
  Receipt Date: 20060125
  Transmission Date: 20060701
  Serious: Yes (Hospitalization)
  Sender: FDA-Public Use
  Company Number: None

PATIENT
  Sex: Male

DRUGS (7)
  1. DILTIAZEM [Suspect]
     Indication: HYPERTENSION
     Dosage: 240, QD, ORAL
     Route: 048
     Dates: start: 20050905, end: 20050917
  2. ATENOLOL [Suspect]
     Indication: HYPERTENSION
     Dosage: 100, QD, ORAL
     Route: 048
     Dates: end: 20050917
  3. ASPIRIN [Concomitant]
  4. CLONIDINE [Concomitant]
  5. VALSARTAN [Concomitant]
  6. ENALAPRIL [Concomitant]
  7. FUROSEMIDE [Concomitant]

REACTIONS (5)
  - BRADYCARDIA [None]
  - CHEST PAIN [None]
  - DRUG ADMINISTRATION ERROR [None]
  - ELECTROCARDIOGRAM T WAVE INVERSION [None]
  - HYPOTENSION [None]
